FAERS Safety Report 20833580 (Version 3)
Quarter: 2022Q2

REPORT INFORMATION
  Report Type: Spontaneous
  Country: US (occurrence: US)
  Receive Date: 20220516
  Receipt Date: 20220524
  Transmission Date: 20220720
  Serious: No
  Sender: FDA-Public Use
  Company Number: US-ORGANON-O2205USA001004

PATIENT
  Age: 71 Year
  Sex: Female
  Weight: 69.841 kg

DRUGS (4)
  1. DULERA [Suspect]
     Active Substance: FORMOTEROL FUMARATE DIHYDRATE\MOMETASONE FUROATE
     Indication: Nasal congestion
     Dosage: 2 PUFFS (DOSAGE FORM), TWICE DAILY; 60 DOSE INHALER
     Dates: start: 20220511
  2. CALCIUM [Concomitant]
     Active Substance: CALCIUM
  3. POTASSIUM [Concomitant]
     Active Substance: POTASSIUM
  4. XARELTO [Concomitant]
     Active Substance: RIVAROXABAN

REACTIONS (4)
  - Device malfunction [Unknown]
  - Poor quality device used [Unknown]
  - Drug ineffective for unapproved indication [Not Recovered/Not Resolved]
  - Product use in unapproved indication [Unknown]

NARRATIVE: CASE EVENT DATE: 20220511
